FAERS Safety Report 20440632 (Version 1)
Quarter: 2022Q1

REPORT INFORMATION
  Report Type: Spontaneous
  Country: US (occurrence: None)
  Receive Date: 20220207
  Receipt Date: 20220207
  Transmission Date: 20220423
  Serious: No
  Sender: FDA-Public Use
  Company Number: 2022A021583

PATIENT
  Age: 28936 Day
  Sex: Male
  Weight: 99.8 kg

DRUGS (1)
  1. PULMICORT FLEXHALER [Suspect]
     Active Substance: BUDESONIDE
     Indication: Asthma
     Dosage: 180MCG 1 PUFF TWICE A DAY
     Route: 055

REACTIONS (8)
  - Feeling abnormal [Recovered/Resolved]
  - Feeling abnormal [Recovered/Resolved]
  - Dyspnoea [Recovered/Resolved]
  - Cough [Recovered/Resolved]
  - Exposure to SARS-CoV-2 [Unknown]
  - Wrong technique in product usage process [Unknown]
  - Intentional device misuse [Recovered/Resolved]
  - Device malfunction [Unknown]

NARRATIVE: CASE EVENT DATE: 20211225
